FAERS Safety Report 11116177 (Version 1)
Quarter: 2015Q2

REPORT INFORMATION
  Report Type: Spontaneous
  Country: JP (occurrence: JP)
  Receive Date: 20150515
  Receipt Date: 20150515
  Transmission Date: 20150821
  Serious: Yes (Hospitalization, Other)
  Sender: FDA-Public Use
  Company Number: JP-TEVA-562479ISR

PATIENT
  Sex: Male

DRUGS (18)
  1. ASPIRIN. [Suspect]
     Active Substance: ASPIRIN
     Route: 065
  2. ATRACTYLODES LANCEA [Suspect]
     Active Substance: ATRACTYLODES LANCEA ROOT
     Indication: TINNITUS
     Dosage: FOR SEVERAL YEARS
     Route: 065
  3. GARDENIA JASMINOIDES [Suspect]
     Active Substance: HERBALS
     Indication: TINNITUS
     Dosage: FOR SEVERAL YEARS
     Route: 065
  4. GLYCYRRHIZA [Suspect]
     Active Substance: LICORICE
     Indication: VERTIGO
     Dosage: FOR SEVERAL YEARS
     Route: 065
  5. WOLFIPORIA EXTENSA [Suspect]
     Active Substance: HERBALS
     Indication: VERTIGO
     Dosage: FOR SEVERAL YEARS
     Route: 065
  6. LANSOPRAZOLE. [Suspect]
     Active Substance: LANSOPRAZOLE
     Route: 065
  7. ANGELICA SINENSIS [Suspect]
     Active Substance: ANGELICA SINENSIS ROOT
     Indication: VERTIGO
     Dosage: FOR SEVERAL YEARS
     Route: 065
  8. GARDENIA JASMINOIDES [Suspect]
     Active Substance: HERBALS
     Indication: VERTIGO
     Dosage: FOR SEVERAL YEARS
     Route: 065
  9. GLYCYRRHIZA [Suspect]
     Active Substance: LICORICE
     Indication: TINNITUS
     Dosage: FOR SEVERAL YEARS
     Route: 065
  10. CINNAMON. [Suspect]
     Active Substance: CINNAMON
     Indication: TINNITUS
     Dosage: FOR SEVERAL YEARS
     Route: 065
  11. TJ 15 [Suspect]
     Active Substance: HERBALS
     Indication: TINNITUS
     Dosage: FOR SEVERAL YEARS
     Route: 065
  12. ATENOLOL. [Concomitant]
     Active Substance: ATENOLOL
     Route: 065
  13. CINNAMON. [Suspect]
     Active Substance: CINNAMON
     Indication: VERTIGO
     Dosage: FOR SEVERAL YEARS
     Route: 065
  14. WOLFIPORIA EXTENSA [Suspect]
     Active Substance: HERBALS
     Indication: TINNITUS
     Dosage: FOR SEVERAL YEARS
     Route: 065
  15. ENALAPRIL [Concomitant]
     Active Substance: ENALAPRIL
     Route: 065
  16. ANGELICA SINENSIS [Suspect]
     Active Substance: ANGELICA SINENSIS ROOT
     Indication: TINNITUS
     Dosage: FOR SEVERAL YEARS
     Route: 065
  17. TJ 15 [Suspect]
     Active Substance: HERBALS
     Indication: VERTIGO
     Dosage: FOR SEVERAL YEARS
     Route: 065
  18. ATRACTYLODES LANCEA [Suspect]
     Active Substance: ATRACTYLODES LANCEA ROOT
     Indication: VERTIGO
     Dosage: FOR SEVERAL YEARS
     Route: 065

REACTIONS (2)
  - Colitis microscopic [Recovering/Resolving]
  - Colitis ischaemic [Recovering/Resolving]
